FAERS Safety Report 20544256 (Version 3)
Quarter: 2025Q2

REPORT INFORMATION
  Report Type: Spontaneous
  Country: CO (occurrence: CO)
  Receive Date: 20220303
  Receipt Date: 20250617
  Transmission Date: 20250716
  Serious: Yes (Hospitalization, Other)
  Sender: SANOFI AVENTIS
  Company Number: CO-SA-SAC20220301001056

PATIENT
  Age: 75 Year
  Sex: Male

DRUGS (4)
  1. DUPILUMAB [Suspect]
     Active Substance: DUPILUMAB
     Indication: Asthma
     Dosage: 200 MG, QOW
     Route: 058
  2. DIOVAN [Concomitant]
     Active Substance: VALSARTAN
     Indication: Hypertension
  3. AMLODIPINE [Concomitant]
     Active Substance: AMLODIPINE BESYLATE
     Indication: Hypertension
  4. PREDNISOLONE [Concomitant]
     Active Substance: PREDNISOLONE
     Indication: Asthma

REACTIONS (7)
  - Pyrexia [Recovering/Resolving]
  - Hyperthyroidism [Recovering/Resolving]
  - Hypertension [Recovering/Resolving]
  - Thyroid mass [Unknown]
  - Renal impairment [Not Recovered/Not Resolved]
  - Eosinophilia [Not Recovered/Not Resolved]
  - Nephropathy [Unknown]

NARRATIVE: CASE EVENT DATE: 20220101
